FAERS Safety Report 8646325 (Version 2)
Quarter: 2012Q4

REPORT INFORMATION
  Report Type: Report from Study
  Country: IT (occurrence: IT)
  Receive Date: 20120702
  Receipt Date: 20121224
  Transmission Date: 20130627
  Serious: Yes (Life-Threatening, Hospitalization)
  Sender: FDA-Public Use
  Company Number: PHHO2012IT009750

PATIENT

DRUGS (12)
  1. AMN107 [Suspect]
     Indication: CHRONIC MYELOID LEUKAEMIA
     Dosage: 300 mg, BID
     Route: 048
     Dates: start: 20100729, end: 20120628
  2. CARDIOASPIRINA [Concomitant]
     Indication: HYPERTENSION
     Dosage: 100 mg, UNK
     Route: 048
     Dates: start: 2001, end: 20120627
  3. NORVASC [Concomitant]
     Indication: HYPERTENSION
     Dosage: UNK
     Dates: start: 2001, end: 20120627
  4. LOSARTAN [Concomitant]
     Indication: HYPERTENSION
     Dosage: UNK
     Dates: start: 2001, end: 20120627
  5. ZYLORIC ^FRESENIUS^ [Concomitant]
     Indication: HYPERURICAEMIA
     Dosage: UNK
     Dates: start: 2001, end: 20120627
  6. DISOXYL [Concomitant]
     Indication: HYPERCHOLESTEROLAEMIA
     Dosage: UNK
     Dates: start: 2001, end: 20120627
  7. ESKIM [Concomitant]
     Indication: HYPERCHOLESTEROLAEMIA
     Dosage: UNK
     Dates: start: 2001, end: 20120627
  8. PARIET [Concomitant]
     Indication: PROPHYLAXIS
     Dosage: UNK
     Dates: start: 20100812
  9. LASIX [Concomitant]
     Indication: HYPERTENSION
     Dosage: 25 mg, QW3
     Route: 048
     Dates: start: 2001, end: 20120627
  10. GLIBOMET [Concomitant]
     Indication: DIABETES MELLITUS
     Dosage: UNK
     Dates: start: 2006, end: 20120617
  11. SINVACOR [Concomitant]
     Indication: HYPERCHOLESTEROLAEMIA
     Dosage: UNK
     Dates: start: 2001, end: 20120627
  12. CARDICOR [Concomitant]
     Indication: HYPERTENSION
     Dosage: UNK
     Dates: start: 2001, end: 20120627

REACTIONS (1)
  - Arteriosclerosis coronary artery [Recovered/Resolved]
